FAERS Safety Report 4515425-3 (Version None)
Quarter: 2004Q4

REPORT INFORMATION
  Report Type: 
  Country: None (occurrence: None)
  Receive Date: 20041029
  Receipt Date: 20040805
  Transmission Date: 20050328
  Serious: No
  Sender: FDA-Public Use
  Company Number: 200415607US

PATIENT
  Age: 71 Year
  Sex: Female

DRUGS (9)
  1. KETEK [Suspect]
     Indication: BRONCHITIS
     Dosage: ONCE
  2. PHENYLEPHRINE HYDROCHLORIDE, GUAIFENESIN, DEXTROMETHORPHAN HYDROBROMID [Concomitant]
  3. GUAIFENESIN [Concomitant]
  4. PHENYLEPHRINE DEXTROMETHORPHAN [Concomitant]
  5. RABEPRAZOLE SODIUM (ACIPHEX) [Concomitant]
  6. AVAPRO [Concomitant]
  7. SYNTHROID [Concomitant]
  8. LOVENOX [Concomitant]
  9. MONTELUKAST SODIUM [Concomitant]

REACTIONS (3)
  - ANGIONEUROTIC OEDEMA [None]
  - HYPERSENSITIVITY [None]
  - PRURITUS [None]
